FAERS Safety Report 7469241-3 (Version None)
Quarter: 2011Q2

REPORT INFORMATION
  Report Type: 
  Country: None (occurrence: None)
  Receive Date: 20110510
  Receipt Date: 20110503
  Transmission Date: 20111010
  Serious: Yes (Other)
  Sender: FDA-Public Use
  Company Number: US-ASTELLAS-2011US001335

PATIENT
  Sex: Male
  Weight: 102 kg

DRUGS (5)
  1. AMEVIVE [Suspect]
     Indication: PSORIASIS
     Dosage: 15 MG, WEEKLY
     Route: 030
     Dates: start: 20040309, end: 20060101
  2. HUMIRA [Concomitant]
     Indication: PSORIASIS
     Dosage: 40 MG, UNKNOWN/D
     Route: 065
  3. LISINOPRIL [Concomitant]
     Indication: HYPERTENSION
     Dosage: UNK
     Route: 048
  4. ENBREL [Concomitant]
     Indication: PSORIASIS
     Dosage: 50 MG, UNKNOWN/D
     Route: 065
  5. RAPTIVA [Concomitant]
     Indication: PSORIASIS
     Dosage: UNK
     Route: 065

REACTIONS (2)
  - ACTINIC KERATOSIS [None]
  - SQUAMOUS CELL CARCINOMA OF SKIN [None]
